FAERS Safety Report 6735212-5 (Version None)
Quarter: 2010Q2

REPORT INFORMATION
  Report Type: 
  Country: None (occurrence: None)
  Receive Date: 20100521
  Receipt Date: 20100512
  Transmission Date: 20101027
  Serious: Yes (Other)
  Sender: FDA-Public Use
  Company Number: GB-JNJFOC-20100506007

PATIENT
  Sex: Male
  Weight: 130 kg

DRUGS (1)
  1. REMICADE [Suspect]
     Indication: DRUG USE FOR UNKNOWN INDICATION
     Dosage: 3 INFUSIONS
     Route: 042

REACTIONS (3)
  - B-CELL LYMPHOMA [None]
  - DRUG INEFFECTIVE [None]
  - INTESTINAL RESECTION [None]
